FAERS Safety Report 6390454-6 (Version None)
Quarter: 2009Q4

REPORT INFORMATION
  Report Type: 
  Country: None (occurrence: None)
  Receive Date: 20091006
  Receipt Date: 20090925
  Transmission Date: 20100525
  Serious: Yes (Other)
  Sender: FDA-Public Use
  Company Number: US-CELGENEUS-163-20785-09082307

PATIENT
  Sex: Female
  Weight: 77.7 kg

DRUGS (22)
  1. THALOMID [Suspect]
     Indication: MULTIPLE MYELOMA
     Route: 048
     Dates: start: 20080317, end: 20090324
  2. THALOMID [Suspect]
     Route: 048
     Dates: start: 20080201, end: 20080301
  3. THALOMID [Suspect]
     Route: 048
     Dates: start: 20090715, end: 20090821
  4. LISINOPRIL [Concomitant]
     Indication: DRUG USE FOR UNKNOWN INDICATION
     Route: 065
  5. NORVASC [Concomitant]
     Indication: DRUG USE FOR UNKNOWN INDICATION
     Route: 048
  6. RENVELA [Concomitant]
     Indication: DRUG USE FOR UNKNOWN INDICATION
     Route: 048
  7. ASPIRIN [Concomitant]
     Indication: DRUG USE FOR UNKNOWN INDICATION
     Route: 065
  8. DECADRON [Concomitant]
     Indication: DRUG USE FOR UNKNOWN INDICATION
     Route: 065
  9. LEVOFLOXACIN [Concomitant]
     Indication: URINARY TRACT INFECTION
     Route: 065
     Dates: start: 20090420
  10. VANCOMYCIN [Concomitant]
     Indication: DRUG USE FOR UNKNOWN INDICATION
     Route: 065
     Dates: start: 20090429
  11. TRAMADOL HCL [Concomitant]
     Indication: PAIN
     Dosage: 1-2 TABLETS
     Route: 048
     Dates: start: 20090521
  12. ACETAMINOPHEN AND HYDROCODONE BITARTRATE [Concomitant]
     Indication: PAIN
     Dosage: 5-500MG PER TABLET, 1-2 TABS
     Route: 048
  13. DIPHENHYDRAMINE HCL [Concomitant]
     Dosage: 1-2 TABS
     Route: 048
  14. DIPHENHYDRAMINE HCL [Concomitant]
  15. FENTANYL-100 [Concomitant]
     Indication: PAIN
     Route: 062
  16. ONDANSETRON [Concomitant]
     Indication: NAUSEA
     Route: 048
  17. RENAL [Concomitant]
     Indication: DRUG USE FOR UNKNOWN INDICATION
     Route: 048
  18. OMEPRAZOLE [Concomitant]
     Route: 048
  19. EZETIMIBE [Concomitant]
     Route: 048
  20. LEVOTHYROXINE SODIUM [Concomitant]
     Route: 048
  21. WHOLE BLOOD [Concomitant]
     Route: 051
     Dates: start: 20090509, end: 20090509
  22. PROCRIT [Concomitant]
     Indication: DRUG USE FOR UNKNOWN INDICATION
     Route: 065

REACTIONS (6)
  - COLITIS ISCHAEMIC [None]
  - PAIN [None]
  - SPINAL COLUMN STENOSIS [None]
  - STAPHYLOCOCCAL BACTERAEMIA [None]
  - URINARY TRACT INFECTION [None]
  - WOUND INFECTION STAPHYLOCOCCAL [None]
